FAERS Safety Report 18282151 (Version 1)
Quarter: 2020Q3

REPORT INFORMATION
  Report Type: Report from Study
  Country: US (occurrence: US)
  Receive Date: 20200918
  Receipt Date: 20200918
  Transmission Date: 20201103
  Serious: Yes (Hospitalization)
  Sender: FDA-Public Use
  Company Number: US-JNJFOC-A-NJ2018-170169

PATIENT
  Age: 83 Year
  Sex: Female
  Weight: 99.43 kg

DRUGS (3)
  1. VENTOLIN [Concomitant]
     Active Substance: ALBUTEROL SULFATE
  2. TRACLEER [Suspect]
     Active Substance: BOSENTAN
     Indication: PULMONARY ARTERIAL HYPERTENSION
     Dosage: 125 MG, BID
     Route: 048
  3. COUMADIN [Concomitant]
     Active Substance: WARFARIN SODIUM

REACTIONS (15)
  - Atrial fibrillation [Unknown]
  - Feeling abnormal [Not Recovered/Not Resolved]
  - Dyspnoea [Unknown]
  - Illness [Not Recovered/Not Resolved]
  - Dysstasia [Unknown]
  - Peripheral swelling [Unknown]
  - Bronchitis [Unknown]
  - Haemorrhage [Unknown]
  - Asthenia [Unknown]
  - Dyspnoea exertional [Unknown]
  - Balance disorder [Unknown]
  - Dehydration [Unknown]
  - Wound [Unknown]
  - Pain [Unknown]
  - Fall [Recovering/Resolving]

NARRATIVE: CASE EVENT DATE: 20190602
